FAERS Safety Report 20233311 (Version 9)
Quarter: 2025Q3

REPORT INFORMATION
  Report Type: Report from Study
  Country: CA (occurrence: CA)
  Receive Date: 20211227
  Receipt Date: 20250902
  Transmission Date: 20251021
  Serious: Yes (Other)
  Sender: TAKEDA
  Company Number: CA-TAKEDA-2019TUS052022

PATIENT
  Age: 69 Year
  Sex: Male

DRUGS (26)
  1. VEDOLIZUMAB [Suspect]
     Active Substance: VEDOLIZUMAB
     Indication: Colitis ulcerative
  2. VEDOLIZUMAB [Suspect]
     Active Substance: VEDOLIZUMAB
  3. VEDOLIZUMAB [Suspect]
     Active Substance: VEDOLIZUMAB
  4. VEDOLIZUMAB [Suspect]
     Active Substance: VEDOLIZUMAB
  5. VEDOLIZUMAB [Suspect]
     Active Substance: VEDOLIZUMAB
  6. VEDOLIZUMAB [Suspect]
     Active Substance: VEDOLIZUMAB
  7. VEDOLIZUMAB [Suspect]
     Active Substance: VEDOLIZUMAB
  8. VEDOLIZUMAB [Suspect]
     Active Substance: VEDOLIZUMAB
  9. VEDOLIZUMAB [Suspect]
     Active Substance: VEDOLIZUMAB
  10. VEDOLIZUMAB [Suspect]
     Active Substance: VEDOLIZUMAB
  11. VEDOLIZUMAB [Suspect]
     Active Substance: VEDOLIZUMAB
  12. VEDOLIZUMAB [Suspect]
     Active Substance: VEDOLIZUMAB
  13. PENTASA [Suspect]
     Active Substance: MESALAMINE
     Indication: Product used for unknown indication
  14. CARBAMAZEPINE [Suspect]
     Active Substance: CARBAMAZEPINE
     Indication: Product used for unknown indication
  15. AVODART [Concomitant]
     Active Substance: DUTASTERIDE
  16. LIPITOR [Concomitant]
     Active Substance: ATORVASTATIN CALCIUM
     Indication: Blood cholesterol abnormal
  17. LOSEC [Concomitant]
     Active Substance: OMEPRAZOLE
     Indication: Gastrooesophageal reflux disease
  18. ASPIRIN [Concomitant]
     Active Substance: ASPIRIN
     Dosage: 81 MILLIGRAM, QD
  19. VALSARTAN [Concomitant]
     Active Substance: VALSARTAN
  20. DUTASTERIDE [Concomitant]
     Active Substance: DUTASTERIDE
  21. ATORVASTATIN [Concomitant]
     Active Substance: ATORVASTATIN
  22. OMEPRAZOLE [Concomitant]
     Active Substance: OMEPRAZOLE
  23. ASPIRIN [Concomitant]
     Active Substance: ASPIRIN
  24. ERLEADA [Concomitant]
     Active Substance: APALUTAMIDE
  25. AMLODIPINE [Concomitant]
     Active Substance: AMLODIPINE BESYLATE
  26. VENLAFAXINE [Concomitant]
     Active Substance: VENLAFAXINE HYDROCHLORIDE

REACTIONS (10)
  - Prostate cancer [Unknown]
  - Hot flush [Recovering/Resolving]
  - Blood pressure increased [Recovering/Resolving]
  - Nerve compression [Unknown]
  - Trigeminal neuralgia [Unknown]
  - Rash pruritic [Unknown]
  - Drug hypersensitivity [Recovering/Resolving]
  - Heart rate increased [Unknown]
  - Rash erythematous [Unknown]
  - Sinusitis [Unknown]

NARRATIVE: CASE EVENT DATE: 20210120
